FAERS Safety Report 22150374 (Version 1)
Quarter: 2023Q1

REPORT INFORMATION
  Report Type: Spontaneous
  Country: AU (occurrence: AU)
  Receive Date: 20230329
  Receipt Date: 20230329
  Transmission Date: 20230417
  Serious: Yes (Hospitalization, Other)
  Sender: FDA-Public Use
  Company Number: AU-JNJFOC-20230360834

PATIENT
  Age: 50 Year
  Sex: Male

DRUGS (3)
  1. INVEGA SUSTENNA [Suspect]
     Active Substance: PALIPERIDONE PALMITATE
     Indication: Product used for unknown indication
     Route: 030
  2. INVEGA SUSTENNA [Suspect]
     Active Substance: PALIPERIDONE PALMITATE
     Route: 030
  3. INVEGA SUSTENNA [Suspect]
     Active Substance: PALIPERIDONE PALMITATE
     Route: 030

REACTIONS (8)
  - Leukaemia [Unknown]
  - Malignant melanoma [Unknown]
  - Treatment noncompliance [Unknown]
  - Bone marrow disorder [Unknown]
  - Sensory loss [Unknown]
  - Sexual dysfunction [Unknown]
  - Hypersensitivity [Unknown]
  - Attention deficit hyperactivity disorder [Unknown]
